FAERS Safety Report 10023943 (Version 1)
Quarter: 2014Q1

REPORT INFORMATION
  Report Type: Spontaneous
  Country: US (occurrence: None)
  Receive Date: 20140319
  Receipt Date: 20140319
  Transmission Date: 20141002
  Serious: Yes (Other)
  Sender: FDA-Public Use
  Company Number: None

PATIENT
  Age: 48 Year
  Sex: Female
  Weight: 54.43 kg

DRUGS (6)
  1. KENALOG [Suspect]
     Indication: URTICARIA
     Dosage: 2 INJECTIONS
  2. SYNTHROID [Concomitant]
  3. MULTI-VITAMIN [Concomitant]
  4. B-COMPLEX [Concomitant]
  5. CALCIUM [Concomitant]
  6. FISH OIL [Concomitant]

REACTIONS (2)
  - Injection site reaction [None]
  - Injection site atrophy [None]
